FAERS Safety Report 19021600 (Version 3)
Quarter: 2021Q1

REPORT INFORMATION
  Report Type: Spontaneous
  Country: US (occurrence: US)
  Receive Date: 20210317
  Receipt Date: 20210329
  Transmission Date: 20210420
  Serious: No
  Sender: FDA-Public Use
  Company Number: US-PFIZER INC-2020405912

PATIENT
  Age: 73 Year
  Sex: Female

DRUGS (2)
  1. LYRICA [Suspect]
     Active Substance: PREGABALIN
     Indication: PAIN
     Dosage: 300 MG, DAILY
  2. LYRICA [Suspect]
     Active Substance: PREGABALIN
     Indication: FIBROMYALGIA
     Dosage: 150 MG, 2X/DAY (SIG: TAKE 1 CAPSULE(S) TWICE A DAY BY ORAL ROUTE), QUANTITY: 180 (ONE HUNDRED EIGHTY
     Route: 048

REACTIONS (2)
  - Pain [Unknown]
  - Product prescribing error [Unknown]
